FAERS Safety Report 9417432 (Version 1)
Quarter: 2013Q3

REPORT INFORMATION
  Report Type: Spontaneous
  Country: US (occurrence: US)
  Receive Date: 20130724
  Receipt Date: 20130724
  Transmission Date: 20140515
  Serious: No
  Sender: FDA-Public Use
  Company Number: US-MYLANLABS-2013S1012172

PATIENT
  Sex: Female

DRUGS (1)
  1. CLONIDINE TRANSDERMAL SYSTEM USP [Suspect]
     Indication: BLOOD PRESSURE INCREASED
     Route: 062

REACTIONS (1)
  - Application site erythema [Not Recovered/Not Resolved]
